FAERS Safety Report 24971947 (Version 2)
Quarter: 2025Q1

REPORT INFORMATION
  Report Type: Report from Study
  Country: CH (occurrence: CH)
  Receive Date: 20250214
  Receipt Date: 20250312
  Transmission Date: 20250409
  Serious: No
  Sender: PFIZER
  Company Number: CH-PFM-2025-00680

PATIENT
  Age: 70 Year
  Sex: Male

DRUGS (18)
  1. ENCORAFENIB [Suspect]
     Active Substance: ENCORAFENIB
     Indication: Malignant melanoma
     Dosage: 450 MG, QD (1/DAY)
     Route: 048
     Dates: start: 20200722, end: 20201116
  2. ENCORAFENIB [Suspect]
     Active Substance: ENCORAFENIB
     Dosage: UNK450 MG, QD (1/DAY)
     Route: 048
     Dates: start: 20201130, end: 20210402
  3. ENCORAFENIB [Suspect]
     Active Substance: ENCORAFENIB
     Dosage: 112.5 MG, BID (2/DAY)
     Route: 048
     Dates: start: 20210716, end: 20210817
  4. BINIMETINIB [Suspect]
     Active Substance: BINIMETINIB
     Indication: Malignant melanoma
     Dosage: 45 MG, BID (2/DAY)
     Route: 048
     Dates: start: 20200722, end: 20201116
  5. BINIMETINIB [Suspect]
     Active Substance: BINIMETINIB
     Dosage: 45 MG, BID (2/DAY)
     Route: 048
     Dates: start: 20201130, end: 20210402
  6. JANUMET [Concomitant]
     Active Substance: METFORMIN HYDROCHLORIDE\SITAGLIPTIN PHOSPHATE
     Route: 065
  7. AMLODIPINE BESYLATE [Concomitant]
     Active Substance: AMLODIPINE BESYLATE
     Route: 065
  8. ATORVASTATIN CALCIUM [Concomitant]
     Active Substance: ATORVASTATIN CALCIUM
     Route: 065
  9. IRBESARTAN [Concomitant]
     Active Substance: IRBESARTAN
     Route: 065
  10. CALCIMAGON [CALCIUM] [Concomitant]
     Indication: Prophylaxis
     Route: 065
     Dates: start: 202008
  11. BETNOVATE [Concomitant]
     Active Substance: BETAMETHASONE
     Route: 065
     Dates: start: 20201117, end: 20201125
  12. ANTIDRY LOTION [Concomitant]
     Indication: Hypersensitivity
     Route: 065
     Dates: start: 20201117, end: 20201125
  13. PERSKINDOL [ESSENTIAL OILS NOS;MENTHOL] [Concomitant]
     Indication: Hypersensitivity
     Route: 065
     Dates: start: 20201117, end: 20201125
  14. POTASSIUM PERMANGANATE BELL [Concomitant]
     Indication: Hypersensitivity
     Route: 065
     Dates: start: 20201126, end: 20201201
  15. BALNEUM HERMAL PLUS [Concomitant]
     Indication: Hypersensitivity
     Route: 065
     Dates: start: 20201126, end: 20201201
  16. PRED FORTE [Concomitant]
     Active Substance: PREDNISOLONE ACETATE
     Route: 065
     Dates: start: 20201007, end: 20210603
  17. ULTRACORTENOL [PREDNISOLONE ACETATE] [Concomitant]
     Route: 065
     Dates: start: 20201007
  18. Mydriaticum AT [Concomitant]
     Route: 065
     Dates: start: 20201007

REACTIONS (1)
  - Acute kidney injury [Not Recovered/Not Resolved]

NARRATIVE: CASE EVENT DATE: 20201126
